FAERS Safety Report 4286327-5 (Version None)
Quarter: 2004Q1

REPORT INFORMATION
  Report Type: 
  Country: None (occurrence: None)
  Receive Date: 20040116
  Receipt Date: 20030929
  Transmission Date: 20041129
  Serious: Yes (Other)
  Sender: FDA-Public Use
  Company Number: 348149

PATIENT
  Sex: Female

DRUGS (1)
  1. VERSED [Suspect]
     Indication: SEDATION
     Dosage: 6 MG DAILY
     Dates: start: 20030929, end: 20030929

REACTIONS (4)
  - CONVULSION [None]
  - DYSKINESIA [None]
  - EYE ROLLING [None]
  - TREMOR [None]
